FAERS Safety Report 4817063-1 (Version None)
Quarter: 2005Q3

REPORT INFORMATION
  Report Type: 
  Country: None (occurrence: None)
  Receive Date: 20050929
  Receipt Date: 20050615
  Transmission Date: 20060218
  Serious: No
  Sender: FDA-Public Use
  Company Number: 05P-163-0303294

PATIENT
  Age: 67 Year
  Sex: Female
  Weight: 49.4421 kg

DRUGS (11)
  1. HUMIRA [Suspect]
     Indication: RHEUMATOID ARTHRITIS
     Dosage: 40 MG, 1 IN 2 WK, SUBCUTANEOUS
     Route: 058
     Dates: start: 20050301
  2. . [Concomitant]
  3. CARVEDILOL [Concomitant]
  4. HYDROXYCHLOROQUINE PHOSPHATE [Concomitant]
  5. FOLIC ACID [Concomitant]
  6. SERTRALINE HYDROCHLORIDE [Concomitant]
  7. PREDNISONE [Concomitant]
  8. OMEPRAZOLE [Concomitant]
  9. ASPIRIN [Concomitant]
  10. METHOTREXATE [Concomitant]
  11. ALENDRONATE SODIUM [Concomitant]

REACTIONS (1)
  - FURUNCLE [None]
